FAERS Safety Report 8381997-4 (Version None)
Quarter: 2012Q2

REPORT INFORMATION
  Report Type: 
  Country: None (occurrence: None)
  Receive Date: 20120522
  Receipt Date: 20120522
  Transmission Date: 20120825
  Serious: Yes (Life-Threatening, Disabling, Other)
  Sender: FDA-Public Use
  Company Number: None

PATIENT
  Age: 47 Year
  Sex: Female
  Weight: 63.5036 kg

DRUGS (1)
  1. ONABTULINUMTOXIN A 100 ALLERGAN [Suspect]
     Indication: SKIN WRINKLING
     Dosage: 45 UNITS OTHER
     Route: 050

REACTIONS (23)
  - NAUSEA [None]
  - GASTRIC DISORDER [None]
  - URINARY INCONTINENCE [None]
  - WEIGHT DECREASED [None]
  - DYSPHAGIA [None]
  - VISION BLURRED [None]
  - FATIGUE [None]
  - DYSPNOEA [None]
  - ANXIETY [None]
  - INFLUENZA LIKE ILLNESS [None]
  - MUSCULAR WEAKNESS [None]
  - MUSCULOSKELETAL DISORDER [None]
  - DRY MOUTH [None]
  - MYALGIA [None]
  - ASTHENIA [None]
  - FUNCTIONAL GASTROINTESTINAL DISORDER [None]
  - ERYTHEMA [None]
  - PRURITUS [None]
  - DRY EYE [None]
  - FEELING ABNORMAL [None]
  - CHEST DISCOMFORT [None]
  - MENTAL IMPAIRMENT [None]
  - DIZZINESS [None]
